FAERS Safety Report 8284701-3 (Version None)
Quarter: 2012Q2

REPORT INFORMATION
  Report Type: 
  Country: None (occurrence: None)
  Receive Date: 20120413
  Receipt Date: 20110426
  Transmission Date: 20120825
  Serious: No
  Sender: FDA-Public Use
  Company Number: US-ASTRAZENECA-2011SE14467

PATIENT
  Age: 62 Year
  Sex: Female

DRUGS (1)
  1. NEXIUM [Suspect]
     Route: 048

REACTIONS (6)
  - FULL BLOOD COUNT DECREASED [None]
  - BRONCHITIS [None]
  - THYROIDITIS [None]
  - PNEUMONIA [None]
  - INFLUENZA [None]
  - MALAISE [None]
